FAERS Safety Report 4474122-3 (Version None)
Quarter: 2004Q4

REPORT INFORMATION
  Report Type: 
  Country: None (occurrence: None)
  Receive Date: 20041008
  Receipt Date: 20041005
  Transmission Date: 20050328
  Serious: Yes (Hospitalization)
  Sender: FDA-Public Use
  Company Number: ENT 2004-0187

PATIENT
  Age: 74 Year
  Sex: Male

DRUGS (3)
  1. COMTAN [Suspect]
     Indication: PARKINSON'S DISEASE
     Dates: start: 20000101
  2. CARBIDOPA W/LEVODOPA [Concomitant]
  3. SELEGILINE HCL [Concomitant]

REACTIONS (8)
  - CARDIAC MURMUR [None]
  - CORONARY ARTERY DISEASE [None]
  - DRUG INEFFECTIVE [None]
  - FIBROSIS [None]
  - MITRAL VALVE INCOMPETENCE [None]
  - RIGHT VENTRICULAR FAILURE [None]
  - SYNCOPE [None]
  - TRICUSPID VALVE INCOMPETENCE [None]
